FAERS Safety Report 5604957-2 (Version None)
Quarter: 2008Q1

REPORT INFORMATION
  Report Type: 
  Country: None (occurrence: None)
  Receive Date: 20080128
  Receipt Date: 20080117
  Transmission Date: 20080703
  Serious: Yes (Hospitalization)
  Sender: FDA-Public Use
  Company Number: SI-BOEHRINGER INGELHEIM PHARMACEUTICALS, INC.-2008-AP-00018AP

PATIENT
  Age: 84 Year
  Sex: Male

DRUGS (5)
  1. SPIRIVA [Suspect]
     Indication: CHRONIC OBSTRUCTIVE PULMONARY DISEASE
     Route: 055
  2. EDEMID [Concomitant]
  3. KORNAM [Concomitant]
  4. SERETIDE [Concomitant]
  5. VENTOLIN [Concomitant]

REACTIONS (3)
  - EYELID OEDEMA [None]
  - HYPONATRAEMIA [None]
  - OEDEMA PERIPHERAL [None]
